FAERS Safety Report 15547003 (Version 1)
Quarter: 2018Q4

REPORT INFORMATION
  Report Type: Spontaneous
  Country: US (occurrence: US)
  Receive Date: 20181018
  Receipt Date: 20181018
  Transmission Date: 20190205
  Serious: No
  Sender: FDA-Public Use
  Company Number: None

PATIENT
  Age: 67 Year
  Sex: Female
  Weight: 65.77 kg

DRUGS (8)
  1. LISINOPRIL. [Concomitant]
     Active Substance: LISINOPRIL
  2. DHEA [Concomitant]
     Active Substance: PRASTERONE
  3. MULTI VITAMIN [Concomitant]
     Active Substance: VITAMINS
  4. GADOLINIUM - BASED CONTRAST AGENT [Suspect]
     Active Substance: GADOLINIUM
     Indication: SCAN
     Dosage: ?          QUANTITY:MRI  CONTRAST XT, ;?
     Route: 042
     Dates: start: 20170210, end: 20170210
  5. VITAMIN B12 [Concomitant]
     Active Substance: CYANOCOBALAMIN
  6. ESTRADIOL. [Concomitant]
     Active Substance: ESTRADIOL
  7. NEURONTIN [Concomitant]
     Active Substance: GABAPENTIN
  8. ELAVIL [Concomitant]
     Active Substance: AMITRIPTYLINE HYDROCHLORIDE

REACTIONS (3)
  - Feeling cold [None]
  - Skin lesion [None]
  - Pruritus [None]

NARRATIVE: CASE EVENT DATE: 20170210
